FAERS Safety Report 23769478 (Version 1)
Quarter: 2024Q2

REPORT INFORMATION
  Report Type: Spontaneous
  Country: CN (occurrence: CN)
  Receive Date: 20240422
  Receipt Date: 20240422
  Transmission Date: 20240716
  Serious: Yes (Life-Threatening)
  Sender: FDA-Public Use
  Company Number: CN-MYLANLABS-2024M1035982

PATIENT
  Age: 55 Year
  Sex: Male
  Weight: 65 kg

DRUGS (8)
  1. LIPITOR [Suspect]
     Active Substance: ATORVASTATIN CALCIUM
     Indication: Cerebral infarction
     Dosage: 40 MILLIGRAM, QD
     Route: 048
     Dates: start: 20240323, end: 20240331
  2. BUTYLPHTHALIDE [Suspect]
     Active Substance: BUTYLPHTHALIDE
     Indication: Cerebral infarction
     Dosage: 100 MILLILITER, BID
     Route: 042
     Dates: start: 20240323, end: 20240331
  3. KALLIDINOGENASE [Suspect]
     Active Substance: KALLIDINOGENASE
     Indication: Cerebral infarction
     Dosage: 0.15 INTERNATIONAL UNIT, QD
     Route: 042
     Dates: start: 20240323, end: 20240331
  4. METHYLCOBALAMIN [Suspect]
     Active Substance: METHYLCOBALAMIN
     Indication: Blood homocysteine increased
     Dosage: 0.5 MILLIGRAM, TID
     Route: 048
     Dates: start: 20240325, end: 20240331
  5. CLOPIDOGREL BISULFATE [Suspect]
     Active Substance: CLOPIDOGREL BISULFATE
     Indication: Cerebral infarction
     Dosage: 75 MILLIGRAM, QD
     Route: 048
     Dates: start: 20240323, end: 20240331
  6. ASPIRIN [Suspect]
     Active Substance: ASPIRIN
     Indication: Cerebral infarction
     Dosage: 100 MILLIGRAM, QD
     Route: 048
     Dates: start: 20240323, end: 20240331
  7. FOLIC ACID [Suspect]
     Active Substance: FOLIC ACID
     Indication: Blood homocysteine increased
     Dosage: 5 MILLIGRAM, BID
     Route: 048
     Dates: start: 20240325, end: 20240331
  8. OZAGREL SODIUM [Suspect]
     Active Substance: OZAGREL SODIUM
     Indication: Cerebral infarction
     Dosage: 40 MILLIGRAM, QD
     Route: 042
     Dates: start: 20240323, end: 20240328

REACTIONS (1)
  - Drug reaction with eosinophilia and systemic symptoms [Recovering/Resolving]

NARRATIVE: CASE EVENT DATE: 20240330
